FAERS Safety Report 7481272-6 (Version None)
Quarter: 2011Q2

REPORT INFORMATION
  Report Type: 
  Country: None (occurrence: None)
  Receive Date: 20110512
  Receipt Date: 20110512
  Transmission Date: 20111010
  Serious: Yes (Hospitalization)
  Sender: FDA-Public Use
  Company Number: None

PATIENT
  Age: 31 Year
  Sex: Male
  Weight: 93.8946 kg

DRUGS (5)
  1. LURASIDONE HYDROCHLORIDE [Suspect]
     Indication: SCHIZOPHRENIA, PARANOID TYPE
     Dosage: 40MG PO AT BEDTIME; 80MG PO AT BEDTIME
     Route: 048
     Dates: start: 20110419, end: 20110425
  2. LURASIDONE HYDROCHLORIDE [Suspect]
     Indication: SCHIZOPHRENIA, PARANOID TYPE
     Dosage: 40MG PO AT BEDTIME; 80MG PO AT BEDTIME
     Route: 048
     Dates: start: 20110426, end: 20110505
  3. LITHIUM CARBONATE [Concomitant]
  4. LEVOTHYROXINE SODIUM [Concomitant]
  5. GEMFIBROZIL [Concomitant]

REACTIONS (1)
  - PSYCHOTIC DISORDER [None]
